FAERS Safety Report 6565390-2 (Version None)
Quarter: 2010Q1

REPORT INFORMATION
  Report Type: 
  Country: None (occurrence: None)
  Receive Date: 20100201
  Receipt Date: 20100120
  Transmission Date: 20100710
  Serious: Yes (Hospitalization)
  Sender: FDA-Public Use
  Company Number: AU-MYLANLABS-2010S1000950

PATIENT
  Age: 6 Decade
  Sex: Female

DRUGS (8)
  1. IBILEX [Suspect]
     Indication: INFECTION PROPHYLAXIS
     Route: 048
  2. AZATHIOPRINE [Suspect]
     Indication: RENAL TRANSPLANT
  3. ADEFIN XL [Concomitant]
  4. LANTUS [Concomitant]
  5. PREDNISOLONE [Concomitant]
  6. SOMAC [Concomitant]
  7. AVAPRO [Concomitant]
     Dosage: 300/12.5 MG MANE
  8. AMLODIPINE [Concomitant]

REACTIONS (1)
  - DRUG INTERACTION [None]
